FAERS Safety Report 22911870 (Version 3)
Quarter: 2023Q4

REPORT INFORMATION
  Report Type: Spontaneous
  Country: US (occurrence: US)
  Receive Date: 20230906
  Receipt Date: 20231106
  Transmission Date: 20240110
  Serious: No
  Sender: FDA-Public Use
  Company Number: US-PFIZER INC-PV202300150222

PATIENT
  Age: 66 Year
  Sex: Female

DRUGS (1)
  1. IBRANCE [Suspect]
     Active Substance: PALBOCICLIB
     Indication: Breast cancer metastatic
     Dosage: UNK
     Route: 048
     Dates: start: 202302

REACTIONS (10)
  - Eye infection [Unknown]
  - Depressed mood [Not Recovered/Not Resolved]
  - Fatigue [Not Recovered/Not Resolved]
  - Alopecia [Not Recovered/Not Resolved]
  - Balance disorder [Unknown]
  - Neoplasm progression [Unknown]
  - Gastroenteritis viral [Unknown]
  - Constipation [Unknown]
  - Hiatus hernia [Unknown]
  - Somnolence [Unknown]
